FAERS Safety Report 16782028 (Version 3)
Quarter: 2022Q3

REPORT INFORMATION
  Report Type: Spontaneous
  Country: US (occurrence: None)
  Receive Date: 20190906
  Receipt Date: 20220804
  Transmission Date: 20221026
  Serious: Yes (Life-Threatening, Hospitalization, Other)
  Sender: FDA-Public Use
  Company Number: 2019SF26067

PATIENT
  Age: 14567 Day
  Sex: Male
  Weight: 172.4 kg

DRUGS (74)
  1. DAPAGLIFLOZIN [Suspect]
     Active Substance: DAPAGLIFLOZIN
     Indication: Type 2 diabetes mellitus
     Route: 048
     Dates: start: 20170630
  2. DAPAGLIFLOZIN [Suspect]
     Active Substance: DAPAGLIFLOZIN
     Indication: Weight decreased
     Route: 048
     Dates: start: 20170630
  3. DAPAGLIFLOZIN [Suspect]
     Active Substance: DAPAGLIFLOZIN
     Indication: Blood pressure abnormal
     Route: 048
     Dates: start: 20170630
  4. DAPAGLIFLOZIN [Suspect]
     Active Substance: DAPAGLIFLOZIN
     Indication: Type 2 diabetes mellitus
     Dosage: GENERIC, 25 MG
     Route: 048
  5. DAPAGLIFLOZIN [Suspect]
     Active Substance: DAPAGLIFLOZIN
     Indication: Weight decreased
     Dosage: GENERIC, 25 MG
     Route: 048
  6. DAPAGLIFLOZIN [Suspect]
     Active Substance: DAPAGLIFLOZIN
     Indication: Blood pressure abnormal
     Dosage: GENERIC, 25 MG
     Route: 048
  7. DAPAGLIFLOZIN [Suspect]
     Active Substance: DAPAGLIFLOZIN
     Indication: Type 2 diabetes mellitus
     Route: 048
     Dates: start: 20200602
  8. DAPAGLIFLOZIN [Suspect]
     Active Substance: DAPAGLIFLOZIN
     Indication: Weight decreased
     Route: 048
     Dates: start: 20200602
  9. DAPAGLIFLOZIN [Suspect]
     Active Substance: DAPAGLIFLOZIN
     Indication: Blood pressure abnormal
     Route: 048
     Dates: start: 20200602
  10. DAPAGLIFLOZIN [Suspect]
     Active Substance: DAPAGLIFLOZIN
     Indication: Type 2 diabetes mellitus
     Dosage: 10.0MG UNKNOWN
     Route: 048
     Dates: start: 201607, end: 2017
  11. DAPAGLIFLOZIN [Suspect]
     Active Substance: DAPAGLIFLOZIN
     Indication: Weight decreased
     Dosage: 10.0MG UNKNOWN
     Route: 048
     Dates: start: 201607, end: 2017
  12. DAPAGLIFLOZIN [Suspect]
     Active Substance: DAPAGLIFLOZIN
     Indication: Blood pressure abnormal
     Dosage: 10.0MG UNKNOWN
     Route: 048
     Dates: start: 201607, end: 2017
  13. ONDANSETRON [Concomitant]
     Active Substance: ONDANSETRON
  14. VANCOMYCIN [Concomitant]
     Active Substance: VANCOMYCIN
     Dates: start: 20171102
  15. OXYCODONE [Concomitant]
     Active Substance: OXYCODONE
  16. CLINDAMYCIN [Concomitant]
     Active Substance: CLINDAMYCIN
     Dates: start: 20171031
  17. DILAUDID [Concomitant]
     Active Substance: HYDROMORPHONE HYDROCHLORIDE
  18. KEFLEX [Concomitant]
     Active Substance: CEPHALEXIN
  19. LANTUS SOLOSTAR [Concomitant]
     Active Substance: INSULIN GLARGINE
  20. ACTOS [Concomitant]
     Active Substance: PIOGLITAZONE HYDROCHLORIDE
  21. JANUVIA [Concomitant]
     Active Substance: SITAGLIPTIN PHOSPHATE
  22. TRULICITY [Concomitant]
     Active Substance: DULAGLUTIDE
  23. PRINIVIL [Concomitant]
     Active Substance: LISINOPRIL
  24. ROBAXIN [Concomitant]
     Active Substance: METHOCARBAMOL
     Dates: start: 20170724
  25. ZOSYN [Concomitant]
     Active Substance: PIPERACILLIN SODIUM\TAZOBACTAM SODIUM
  26. TRAMADOL [Concomitant]
     Active Substance: TRAMADOL
     Route: 048
  27. ALEVE [Concomitant]
     Active Substance: NAPROXEN SODIUM
     Route: 048
     Dates: start: 20160812
  28. GLIPIZIDE [Concomitant]
     Active Substance: GLIPIZIDE
     Route: 048
     Dates: start: 20160812
  29. METFORMIN [Concomitant]
     Active Substance: METFORMIN HYDROCHLORIDE
     Route: 048
     Dates: start: 20160812
  30. MOBIC [Concomitant]
     Active Substance: MELOXICAM
     Route: 048
     Dates: start: 20160812
  31. OMEPRAZOLE [Concomitant]
     Active Substance: OMEPRAZOLE
     Route: 048
     Dates: start: 20160812
  32. PIPERACILLIN [Concomitant]
     Active Substance: PIPERACILLIN
     Dates: start: 20171031
  33. MORPHINE [Concomitant]
     Active Substance: MORPHINE
     Dates: start: 20171031
  34. WARFARIN [Concomitant]
     Active Substance: WARFARIN
  35. ASCORBIC ACID [Concomitant]
     Active Substance: ASCORBIC ACID
  36. BACTRIM [Concomitant]
     Active Substance: SULFAMETHOXAZOLE\TRIMETHOPRIM
  37. CELEBREX [Concomitant]
     Active Substance: CELECOXIB
  38. NEXIUM [Concomitant]
     Active Substance: ESOMEPRAZOLE MAGNESIUM
     Route: 048
  39. PROTONIX [Concomitant]
     Active Substance: PANTOPRAZOLE SODIUM
  40. POTASSIUM [Concomitant]
     Active Substance: POTASSIUM
  41. TYLENOL [Concomitant]
     Active Substance: ACETAMINOPHEN
  42. ZOFRAN [Concomitant]
     Active Substance: ONDANSETRON HYDROCHLORIDE
  43. DEMEROL [Concomitant]
     Active Substance: MEPERIDINE HYDROCHLORIDE
  44. PHENERGAN [Concomitant]
     Active Substance: PROMETHAZINE HYDROCHLORIDE
  45. PIOGLITAZONE [Concomitant]
     Active Substance: PIOGLITAZONE
  46. POTASSIUM CHLORIDE [Concomitant]
     Active Substance: POTASSIUM CHLORIDE
     Dates: start: 20171101
  47. ENOXAPARIN [Concomitant]
     Active Substance: ENOXAPARIN
     Dates: start: 20171105
  48. BACITRACIN [Concomitant]
     Active Substance: BACITRACIN
     Dates: start: 20171031
  49. FENTANYL [Concomitant]
     Active Substance: FENTANYL
     Dates: start: 20171101
  50. BUPIVACAINE [Concomitant]
     Active Substance: BUPIVACAINE
     Dates: start: 20171101
  51. IBUPROFEN [Concomitant]
     Active Substance: IBUPROFEN
     Dates: start: 20171101
  52. ESMOLOL [Concomitant]
     Active Substance: ESMOLOL HYDROCHLORIDE
  53. PROPOFOL [Concomitant]
     Active Substance: PROPOFOL
  54. TAZOBACTAM [Concomitant]
     Active Substance: TAZOBACTAM
  55. NEOSTIGMINE [Concomitant]
     Active Substance: NEOSTIGMINE
  56. EZETIMIBE [Concomitant]
     Active Substance: EZETIMIBE
  57. GABAPENTIN [Concomitant]
     Active Substance: GABAPENTIN
     Dates: start: 20170724
  58. WARFARIN SODIUM [Concomitant]
     Active Substance: WARFARIN SODIUM
  59. HUMALOG [Concomitant]
     Active Substance: INSULIN LISPRO
  60. HYDROCODONE BITARTRATE AND ACETAMINOPHEN [Concomitant]
     Active Substance: ACETAMINOPHEN\HYDROCODONE BITARTRATE
     Dates: start: 20170724
  61. PREDNISONE [Concomitant]
     Active Substance: PREDNISONE
     Dates: start: 20170724
  62. SULFAMETHOXAZOLE [Concomitant]
     Active Substance: SULFAMETHOXAZOLE
  63. METHOCARBAMOL [Concomitant]
     Active Substance: METHOCARBAMOL
  64. OZEMPIC [Concomitant]
     Active Substance: SEMAGLUTIDE
  65. ATORVASTATIN [Concomitant]
     Active Substance: ATORVASTATIN
  66. ACETAMINOPHEN\HYDROCODONE [Concomitant]
     Active Substance: ACETAMINOPHEN\HYDROCODONE
  67. METFORMIN [Concomitant]
     Active Substance: METFORMIN HYDROCHLORIDE
  68. NOVOLOG [Concomitant]
     Active Substance: INSULIN ASPART
  69. TRAMADOL [Concomitant]
     Active Substance: TRAMADOL
  70. MELOXICAM [Concomitant]
     Active Substance: MELOXICAM
  71. LOSARTAN POTASSIUM [Concomitant]
     Active Substance: LOSARTAN POTASSIUM
  72. SIMVASTATIN [Concomitant]
     Active Substance: SIMVASTATIN
  73. LISINOPRIL [Concomitant]
     Active Substance: LISINOPRIL
  74. TRESIBA [Concomitant]
     Active Substance: INSULIN DEGLUDEC
     Indication: Diabetes mellitus
     Route: 065
     Dates: start: 2019

REACTIONS (9)
  - Sepsis [Unknown]
  - Necrotising fasciitis [Unknown]
  - Fournier^s gangrene [Unknown]
  - Scrotal abscess [Unknown]
  - Perineal abscess [Unknown]
  - Abscess limb [Unknown]
  - Groin abscess [Unknown]
  - Genital abscess [Unknown]
  - Anal abscess [Unknown]

NARRATIVE: CASE EVENT DATE: 20171028
